FAERS Safety Report 19488822 (Version 1)
Quarter: 2021Q3

REPORT INFORMATION
  Report Type: Spontaneous
  Country: ES (occurrence: ES)
  Receive Date: 20210703
  Receipt Date: 20210703
  Transmission Date: 20211014
  Serious: Yes (Death, Hospitalization, Other)
  Sender: FDA-Public Use
  Company Number: ES-AUROBINDO-AUR-APL-2021-028008

PATIENT
  Age: 74 Year
  Sex: Male

DRUGS (12)
  1. MEROPENEM. [Suspect]
     Active Substance: MEROPENEM
     Indication: ACUTE RESPIRATORY DISTRESS SYNDROME
     Dosage: DESC
     Route: 042
     Dates: start: 20200324, end: 20200413
  2. DOPAMINA GRIFOLS [Concomitant]
     Indication: ACUTE RESPIRATORY DISTRESS SYNDROME
     Dosage: DESC
     Route: 042
     Dates: start: 20200324, end: 20200410
  3. AZITHROMICIN [Suspect]
     Active Substance: AZITHROMYCIN
     Indication: ACUTE RESPIRATORY DISTRESS SYNDROME
     Dosage: DESC
     Route: 042
     Dates: start: 20200323, end: 20200413
  4. LINEZOLID. [Suspect]
     Active Substance: LINEZOLID
     Indication: ACUTE RESPIRATORY DISTRESS SYNDROME
     Dosage: DESC
     Route: 042
     Dates: start: 20200330, end: 20200410
  5. NORADRENALINA [Concomitant]
     Indication: ACUTE RESPIRATORY DISTRESS SYNDROME
     Dosage: DESC
     Route: 042
     Dates: start: 20200326, end: 20200409
  6. PANTOPRAZOL [Suspect]
     Active Substance: PANTOPRAZOLE SODIUM
     Indication: ACUTE RESPIRATORY DISTRESS SYNDROME
     Dosage: 40 MG, 1 TIME A DAY
     Route: 042
     Dates: start: 20200323, end: 20200410
  7. CISATRACURIO [Concomitant]
     Indication: HYPOTONIA
     Dosage: DESC
     Route: 042
     Dates: start: 20200324, end: 20200410
  8. DEXDOR [Concomitant]
     Active Substance: DEXMEDETOMIDINE HYDROCHLORIDE
     Indication: LIGHT ANAESTHESIA
     Dosage: DESC
     Route: 042
     Dates: start: 20200406, end: 20200409
  9. TRANGOREX [Suspect]
     Active Substance: AMIODARONE HYDROCHLORIDE
     Indication: ACUTE RESPIRATORY DISTRESS SYNDROME
     Dosage: DESC
     Route: 042
     Dates: start: 20200405, end: 20200410
  10. DEXAMETASONA KERN PHARMA [Concomitant]
     Active Substance: DEXAMETHASONE
     Indication: ACUTE RESPIRATORY DISTRESS SYNDROME
     Dosage: DESC
     Route: 042
     Dates: start: 20200325, end: 20200331
  11. FENTANEST [Concomitant]
     Active Substance: FENTANYL CITRATE
     Indication: LIGHT ANAESTHESIA
     Dosage: DESC
     Route: 042
     Dates: start: 20200401, end: 20200410
  12. MIDAZOLAM. [Concomitant]
     Active Substance: MIDAZOLAM
     Indication: LIGHT ANAESTHESIA
     Dosage: DESC
     Route: 042
     Dates: start: 20200327, end: 20200409

REACTIONS (1)
  - SJS-TEN overlap [Fatal]

NARRATIVE: CASE EVENT DATE: 20200410
